FAERS Safety Report 5757375-0 (Version None)
Quarter: 2008Q2

REPORT INFORMATION
  Report Type: 
  Country: None (occurrence: None)
  Receive Date: 20080603
  Receipt Date: 20080519
  Transmission Date: 20081010
  Serious: Yes (Other)
  Sender: FDA-Public Use
  Company Number: US-BAYER-200811965BCC

PATIENT
  Age: 20 Year
  Sex: Female
  Weight: 75 kg

DRUGS (6)
  1. NEO-SYNEPHRINE 12 HOUR MOISTURIZING [Suspect]
     Indication: NASAL CONGESTION
     Route: 045
     Dates: start: 19880101
  2. NEO-SYNEPHRINE 12 HOUR MOISTURIZING [Suspect]
     Route: 045
     Dates: start: 19880101
  3. ADVIL [Concomitant]
  4. TYLENOL [Concomitant]
  5. SYNTHROID [Concomitant]
  6. XANAX [Concomitant]

REACTIONS (3)
  - CAESAREAN SECTION [None]
  - FOETAL HEART RATE DECREASED [None]
  - UMBILICAL CORD AROUND NECK [None]
